FAERS Safety Report 11787198 (Version 2)
Quarter: 2016Q1

REPORT INFORMATION
  Report Type: Report from Study
  Country: US (occurrence: US)
  Receive Date: 20151130
  Receipt Date: 20160309
  Transmission Date: 20160525
  Serious: Yes (Other)
  Sender: FDA-Public Use
  Company Number: US-SA-2015SA188369

PATIENT
  Sex: Female

DRUGS (2)
  1. SOLOSTAR [Concomitant]
     Active Substance: DEVICE
     Indication: DIABETES MELLITUS
  2. LANTUS SOLOSTAR [Suspect]
     Active Substance: INSULIN GLARGINE
     Indication: DIABETES MELLITUS
     Route: 065

REACTIONS (10)
  - Metabolic surgery [Unknown]
  - Spinal operation [Unknown]
  - Abdominal operation [Unknown]
  - Knee arthroplasty [Unknown]
  - Limb operation [Unknown]
  - Eye operation [Unknown]
  - Hip surgery [Unknown]
  - Dizziness [Unknown]
  - Breast operation [Unknown]
  - Shoulder arthroplasty [Unknown]
